FAERS Safety Report 7760977-3 (Version None)
Quarter: 2011Q3

REPORT INFORMATION
  Report Type: 
  Country: None (occurrence: None)
  Receive Date: 20110920
  Receipt Date: 20110913
  Transmission Date: 20111222
  Serious: Yes (Hospitalization)
  Sender: FDA-Public Use
  Company Number: US-BIOGENIDEC-2011BI024915

PATIENT
  Age: 51 Year
  Sex: Female

DRUGS (1)
  1. TYSABRI [Suspect]
     Indication: MULTIPLE SCLEROSIS
     Route: 042
     Dates: start: 20110616

REACTIONS (14)
  - PNEUMONIA [None]
  - INFECTION [None]
  - WEIGHT DECREASED [None]
  - HIATUS HERNIA [None]
  - OPTIC NEURITIS [None]
  - FUNCTIONAL GASTROINTESTINAL DISORDER [None]
  - PNEUMONIA ASPIRATION [None]
  - LIP DRY [None]
  - LARYNGITIS BACTERIAL [None]
  - LUNG DISORDER [None]
  - SEPSIS [None]
  - MULTIPLE SCLEROSIS [None]
  - MULTIPLE SCLEROSIS RELAPSE [None]
  - BLADDER DYSFUNCTION [None]
